FAERS Safety Report 24981961 (Version 1)
Quarter: 2025Q1

REPORT INFORMATION
  Report Type: Other
  Country: US (occurrence: US)
  Receive Date: 20250218
  Receipt Date: 20250218
  Transmission Date: 20250408
  Serious: Yes (Death, Other)
  Sender: KNIGHT THERAPEUTICS
  Company Number: US-Knight Therapeutics (USA) Inc.-2171296

PATIENT
  Sex: Male

DRUGS (6)
  1. IMPAVIDO [Suspect]
     Active Substance: MILTEFOSINE
     Indication: Acanthamoeba infection
  2. IMPAVIDO [Suspect]
     Active Substance: MILTEFOSINE
     Indication: Encephalitis
  3. FLUCYTOSINE [Suspect]
     Active Substance: FLUCYTOSINE
  4. SULFADIAZINE [Suspect]
     Active Substance: SULFADIAZINE
  5. PENTAMIDINE ISETHIONATE [Suspect]
     Active Substance: PENTAMIDINE ISETHIONATE
  6. FLUCONAZOLE [Suspect]
     Active Substance: FLUCONAZOLE

REACTIONS (2)
  - Multiple organ dysfunction syndrome [Fatal]
  - Product use in unapproved indication [Unknown]
